FAERS Safety Report 4624996-8 (Version None)
Quarter: 2005Q2

REPORT INFORMATION
  Report Type: 
  Country: None (occurrence: None)
  Receive Date: 20050401
  Receipt Date: 20050323
  Transmission Date: 20051028
  Serious: Yes (Death)
  Sender: FDA-Public Use
  Company Number: NL-JNJFOC-20050306116

PATIENT
  Sex: Female

DRUGS (6)
  1. REMINYL [Suspect]
     Indication: DEMENTIA
     Route: 065
     Dates: start: 20050203
  2. PREDNISONUM [Concomitant]
     Route: 065
  3. EVISTA [Concomitant]
     Route: 065
  4. CACIT [Concomitant]
     Route: 065
  5. CACIT [Concomitant]
     Route: 065
  6. APPROVEL [Concomitant]
     Route: 065

REACTIONS (1)
  - SUDDEN DEATH [None]
